FAERS Safety Report 18352297 (Version 1)
Quarter: 2020Q4

REPORT INFORMATION
  Report Type: Spontaneous
  Country: US (occurrence: US)
  Receive Date: 20201006
  Receipt Date: 20201006
  Transmission Date: 20210114
  Serious: Yes (Death, Hospitalization, Other)
  Sender: FDA-Public Use
  Company Number: US-GILEAD-2020-0497511

PATIENT
  Age: 60 Year
  Sex: Male
  Weight: 75 kg

DRUGS (19)
  1. ASCORBIC ACID. [Concomitant]
     Active Substance: ASCORBIC ACID
  2. CHOLECALCIFEROL [Concomitant]
     Active Substance: CHOLECALCIFEROL
  3. PANTOPRAZOLE [Concomitant]
     Active Substance: PANTOPRAZOLE
  4. ZINC. [Concomitant]
     Active Substance: ZINC
  5. CEFEPIME [Concomitant]
     Active Substance: CEFEPIME HYDROCHLORIDE
  6. CEFTRIAXONE. [Concomitant]
     Active Substance: CEFTRIAXONE
  7. MELATONIN [Concomitant]
     Active Substance: MELATONIN
  8. VANCOMYCIN [Concomitant]
     Active Substance: VANCOMYCIN
  9. INSULIN GLARGINE [Concomitant]
     Active Substance: INSULIN GLARGINE
  10. ENOXAPARIN [Concomitant]
     Active Substance: ENOXAPARIN
  11. MEROPENEM. [Concomitant]
     Active Substance: MEROPENEM
  12. REMDESIVIR. [Suspect]
     Active Substance: REMDESIVIR
     Indication: COVID-19 PNEUMONIA
     Dosage: 100 MG, QD
     Route: 042
     Dates: start: 20200716, end: 20200718
  13. AZITHROMYCIN ANHYDROUS. [Concomitant]
     Active Substance: AZITHROMYCIN ANHYDROUS
  14. AMIODARONE [Concomitant]
     Active Substance: AMIODARONE
  15. HEPARIN [Concomitant]
     Active Substance: HEPARIN SODIUM
  16. DEXAMETHASONE. [Concomitant]
     Active Substance: DEXAMETHASONE
  17. MICAFUNGIN. [Concomitant]
     Active Substance: MICAFUNGIN SODIUM
  18. THIAMINE. [Concomitant]
     Active Substance: THIAMINE
  19. FAMOTIDINE. [Concomitant]
     Active Substance: FAMOTIDINE

REACTIONS (1)
  - Death [Fatal]

NARRATIVE: CASE EVENT DATE: 20200921
